FAERS Safety Report 13984500 (Version 4)
Quarter: 2017Q4

REPORT INFORMATION
  Report Type: Spontaneous
  Country: JP (occurrence: JP)
  Receive Date: 20170918
  Receipt Date: 20171010
  Transmission Date: 20180321
  Serious: Yes (Death, Hospitalization, Other)
  Sender: FDA-Public Use
  Company Number: JP-PFIZER INC-2017398025

PATIENT
  Age: 74 Year
  Sex: Female

DRUGS (1)
  1. CAMPTO [Suspect]
     Active Substance: IRINOTECAN
     Indication: GASTRIC CANCER
     Dosage: UNK, 1X/DAY (TOTAL OF 4 CYCLES)
     Route: 041

REACTIONS (1)
  - Posterior reversible encephalopathy syndrome [Fatal]
